FAERS Safety Report 9276078 (Version 1)
Quarter: 2012Q4

REPORT INFORMATION
  Report Type: Spontaneous
  Country: US (occurrence: None)
  Receive Date: 20121109
  Receipt Date: 20121109
  Transmission Date: 20130627
  Serious: Yes (Hospitalization, Other)
  Sender: FDA-Public Use
  Company Number: 2012S1000363

PATIENT
  Age: 69 Year
  Sex: Male

DRUGS (3)
  1. CUBICIN [Suspect]
     Indication: INFECTION
     Dosage: U UNK ; UNK ; IV
     Route: 042
  2. PREDNISONE [Concomitant]
  3. COUMADIN [Concomitant]

REACTIONS (5)
  - Eosinophilic pneumonia [None]
  - Myopathy [None]
  - Thrombosis [None]
  - Nasopharyngitis [None]
  - Medical device complication [None]
